FAERS Safety Report 22158890 (Version 2)
Quarter: 2023Q2

REPORT INFORMATION
  Report Type: Spontaneous
  Country: US (occurrence: US)
  Receive Date: 20230331
  Receipt Date: 20230519
  Transmission Date: 20230721
  Serious: No
  Sender: FDA-Public Use
  Company Number: US-SA-SAC20230329000625

PATIENT
  Sex: Female

DRUGS (21)
  1. AUBAGIO [Suspect]
     Active Substance: TERIFLUNOMIDE
     Dosage: 1 DF, QD
     Route: 048
  2. METOPROLOL\RAMIPRIL [Suspect]
     Active Substance: METOPROLOL\RAMIPRIL
     Dosage: 6MG
  3. OMEPRAZOLE [Concomitant]
     Active Substance: OMEPRAZOLE
  4. OZEMPIC [Concomitant]
     Active Substance: SEMAGLUTIDE
  5. PREGABALIN [Concomitant]
     Active Substance: PREGABALIN
  6. RIZATRIPTAN [Concomitant]
     Active Substance: RIZATRIPTAN
  7. HIGH DENSITY POLYETHYLENE [Concomitant]
     Active Substance: HIGH DENSITY POLYETHYLENE
  8. AFTER BITE [AMMONIA WATER] [Concomitant]
  9. ANTISEPTIC SOLUTION [Concomitant]
  10. HYDROGEN PEROXIDE [Concomitant]
     Active Substance: HYDROGEN PEROXIDE
  11. ALBUTEROL SULFATE [Concomitant]
     Active Substance: ALBUTEROL SULFATE
  12. AMANTADINE HYDROCHLORIDE [Concomitant]
     Active Substance: AMANTADINE HYDROCHLORIDE
  13. BIOTIN [Concomitant]
     Active Substance: BIOTIN
  14. CITALOPRAM [Concomitant]
     Active Substance: CITALOPRAM HYDROBROMIDE
  15. CLONAZEPAM [Concomitant]
     Active Substance: CLONAZEPAM
  16. DEXILANT [Concomitant]
     Active Substance: DEXLANSOPRAZOLE
     Dosage: 15MG
  17. MELOXICAM [Concomitant]
     Active Substance: MELOXICAM
  18. TIZANIDINE HYDROCHLORIDE [Concomitant]
     Active Substance: TIZANIDINE HYDROCHLORIDE
  19. TOPIRAMATE [Concomitant]
     Active Substance: TOPIRAMATE
  20. VENTOLIN HFA [Concomitant]
     Active Substance: ALBUTEROL SULFATE
  21. METOPROLOL [Concomitant]
     Active Substance: METOPROLOL

REACTIONS (9)
  - Tremor [Not Recovered/Not Resolved]
  - Urinary incontinence [Not Recovered/Not Resolved]
  - Visual impairment [Not Recovered/Not Resolved]
  - Gait disturbance [Not Recovered/Not Resolved]
  - Balance disorder [Not Recovered/Not Resolved]
  - Eye movement disorder [Not Recovered/Not Resolved]
  - Alopecia [Not Recovered/Not Resolved]
  - Paraesthesia [Not Recovered/Not Resolved]
  - Hypoaesthesia [Not Recovered/Not Resolved]
